FAERS Safety Report 10186543 (Version 1)
Quarter: 2014Q2

REPORT INFORMATION
  Report Type: Report from Study
  Country: US (occurrence: US)
  Receive Date: 20140521
  Receipt Date: 20140521
  Transmission Date: 20141212
  Serious: Yes (Other)
  Sender: FDA-Public Use
  Company Number: PHEH2014US010001

PATIENT
  Age: 21 Year
  Sex: Female

DRUGS (5)
  1. TOBI PODHALER [Suspect]
     Indication: CYSTIC FIBROSIS
     Dosage: 112 MG TWICE A DAY
     Route: 055
     Dates: start: 201311, end: 201401
  2. TOBI [Suspect]
     Indication: CYSTIC FIBROSIS
     Dosage: 300MG/5ML TWICE A DAY
     Route: 055
  3. CREON [Concomitant]
     Dosage: UNK
  4. PREVACID [Concomitant]
     Dosage: UNK
  5. VITAMINS NOS [Concomitant]

REACTIONS (3)
  - Condition aggravated [Unknown]
  - Cystic fibrosis [Unknown]
  - Malaise [Unknown]
